FAERS Safety Report 18799689 (Version 1)
Quarter: 2021Q1

REPORT INFORMATION
  Report Type: Spontaneous
  Country: CR (occurrence: CR)
  Receive Date: 20210128
  Receipt Date: 20210128
  Transmission Date: 20210419
  Serious: Yes (Disabling)
  Sender: FDA-Public Use
  Company Number: CR-PFIZER INC-2021069368

PATIENT
  Age: 71 Year
  Sex: Male

DRUGS (1)
  1. LIPITOR [Suspect]
     Active Substance: ATORVASTATIN CALCIUM
     Indication: CARDIAC DISORDER
     Dosage: 1 DF, DAILY
     Route: 048
     Dates: start: 2017

REACTIONS (2)
  - Spinal disorder [Unknown]
  - Off label use [Unknown]
